FAERS Safety Report 4683530-7 (Version None)
Quarter: 2005Q2

REPORT INFORMATION
  Report Type: 
  Country: None (occurrence: None)
  Receive Date: 20050602
  Receipt Date: 20050318
  Transmission Date: 20051028
  Serious: No
  Sender: FDA-Public Use
  Company Number: 200510537BWH

PATIENT
  Age: 67 Year
  Sex: Male

DRUGS (1)
  1. LEVITRA [Suspect]
     Dosage: 20 MG, ONCE, ORAL
     Route: 048
     Dates: start: 20050317

REACTIONS (1)
  - DRUG INEFFECTIVE [None]
